FAERS Safety Report 5064763-7 (Version None)
Quarter: 2006Q3

REPORT INFORMATION
  Report Type: 
  Country: None (occurrence: None)
  Receive Date: 20060725
  Receipt Date: 20060710
  Transmission Date: 20061208
  Serious: Yes (Disabling)
  Sender: FDA-Public Use
  Company Number: 2006S1006384

PATIENT
  Age: 83 Year
  Sex: Female
  Weight: 51.7101 kg

DRUGS (2)
  1. NITROFURANTOIN MONOHYDRATE/MACROCRYSTALS [Suspect]
     Indication: URINARY TRACT INFECTION
     Dosage: 100 MG;QD;PO
     Route: 048
     Dates: start: 20060515, end: 20060525
  2. MONTELUKAST [Concomitant]

REACTIONS (9)
  - ARTHRALGIA [None]
  - ASTHENIA [None]
  - COUGH [None]
  - DYSPNOEA [None]
  - DYSSTASIA [None]
  - MOTOR DYSFUNCTION [None]
  - PNEUMONITIS [None]
  - TREMOR [None]
  - WEIGHT DECREASED [None]
